FAERS Safety Report 9720356 (Version 1)
Quarter: 2013Q4

REPORT INFORMATION
  Report Type: Spontaneous
  Country: FR (occurrence: FR)
  Receive Date: 20131129
  Receipt Date: 20131129
  Transmission Date: 20140711
  Serious: Yes (Other)
  Sender: FDA-Public Use
  Company Number: FR-AMGEN-FRASP2013084288

PATIENT
  Age: 4 Year
  Sex: Female

DRUGS (2)
  1. ROMIPLOSTIM [Suspect]
     Indication: IMMUNE THROMBOCYTOPENIC PURPURA
     Dosage: 10 MUG/KG, QWK
     Route: 065
  2. HYDROXYCHLOROQUINE [Concomitant]

REACTIONS (3)
  - Haemorrhage [Unknown]
  - Drug ineffective [Unknown]
  - Affective disorder [Unknown]
